FAERS Safety Report 20615502 (Version 2)
Quarter: 2022Q2

REPORT INFORMATION
  Report Type: Spontaneous
  Country: US (occurrence: US)
  Receive Date: 20220321
  Receipt Date: 20220412
  Transmission Date: 20220720
  Serious: Yes (Other)
  Sender: FDA-Public Use
  Company Number: US-CELLTRION INC.-2022US003135

PATIENT

DRUGS (2)
  1. TRUXIMA [Suspect]
     Active Substance: RITUXIMAB-ABBS
     Indication: Antisynthetase syndrome
     Dosage: 1000 MG WITH A FREQUENCY OF ONCE
     Dates: start: 20211215
  2. TRUXIMA [Suspect]
     Active Substance: RITUXIMAB-ABBS
     Indication: Interstitial lung disease
     Dosage: 1000 MG WITH A FREQUENCY OF ONCE
     Dates: start: 20220104

REACTIONS (3)
  - Interstitial lung disease [Unknown]
  - Antisynthetase syndrome [Unknown]
  - Off label use [Unknown]
